FAERS Safety Report 12109649 (Version 1)
Quarter: 2016Q1

REPORT INFORMATION
  Report Type: Spontaneous
  Country: US (occurrence: None)
  Receive Date: 20160222
  Receipt Date: 20160222
  Transmission Date: 20160526
  Serious: No
  Sender: FDA-Public Use
  Company Number: None

PATIENT
  Age: 50 Year
  Sex: Male

DRUGS (13)
  1. ADALIMUMAB [Suspect]
     Active Substance: ADALIMUMAB
     Indication: INFLAMMATION
     Route: 058
     Dates: start: 20140501, end: 20160102
  2. ISONIAZID. [Concomitant]
     Active Substance: ISONIAZID
  3. METHYLPREDNISOLONE. [Concomitant]
     Active Substance: METHYLPREDNISOLONE
  4. INSULIN ASPART [Concomitant]
     Active Substance: INSULIN ASPART
  5. METRONIDAZOLE. [Concomitant]
     Active Substance: METRONIDAZOLE
  6. RIFAMPIN. [Concomitant]
     Active Substance: RIFAMPIN
  7. VANCOMYCIN [Concomitant]
     Active Substance: VANCOMYCIN
  8. ACETAMINOPHEN. [Concomitant]
     Active Substance: ACETAMINOPHEN
  9. AZTREONAM. [Concomitant]
     Active Substance: AZTREONAM
  10. ETHAMBUTOL [Concomitant]
     Active Substance: ETHAMBUTOL HYDROCHLORIDE
  11. FAMOTIDINE. [Concomitant]
     Active Substance: FAMOTIDINE
  12. HEPARIN [Concomitant]
     Active Substance: HEPARIN SODIUM
  13. PYRAZINAMIDE. [Concomitant]
     Active Substance: PYRAZINAMIDE

REACTIONS (1)
  - Histoplasmosis [None]

NARRATIVE: CASE EVENT DATE: 20160120
